FAERS Safety Report 6806779-3 (Version None)
Quarter: 2010Q2

REPORT INFORMATION
  Report Type: 
  Country: None (occurrence: None)
  Receive Date: 20100629
  Receipt Date: 20080521
  Transmission Date: 20101027
  Serious: No
  Sender: FDA-Public Use
  Company Number: US-PFIZER INC-2008027872

PATIENT
  Sex: Male
  Weight: 95.25 kg

DRUGS (2)
  1. TIKOSYN [Suspect]
     Indication: ATRIAL FIBRILLATION
     Route: 048
     Dates: start: 20080101
  2. WARFARIN [Concomitant]
     Indication: THROMBOSIS
     Route: 048

REACTIONS (1)
  - ANXIETY [None]
